FAERS Safety Report 5649353-7 (Version None)
Quarter: 2008Q1

REPORT INFORMATION
  Report Type: 
  Country: None (occurrence: None)
  Receive Date: 20080304
  Receipt Date: 20080303
  Transmission Date: 20080703
  Serious: Yes (Death, Hospitalization)
  Sender: FDA-Public Use
  Company Number: FRWYE767722JUN06

PATIENT
  Sex: Male

DRUGS (11)
  1. TIGECYCLINE [Suspect]
     Indication: STENOTROPHOMONAS INFECTION
     Dosage: UNKNOWN
     Route: 042
     Dates: start: 20060206, end: 20060223
  2. TIGECYCLINE [Suspect]
     Indication: BRONCHOPNEUMONIA
     Dosage: UNKNOWN
     Route: 042
     Dates: start: 20060107, end: 20060120
  3. TIGECYCLINE [Suspect]
     Indication: ENTEROCOCCAL BACTERAEMIA
  4. TIGECYCLINE [Suspect]
     Indication: ACINETOBACTER BACTERAEMIA
  5. TIGECYCLINE [Suspect]
     Indication: PSEUDOMONAL BACTERAEMIA
  6. AMIKLIN [Concomitant]
     Dosage: UNKNOWN
     Dates: start: 20060206, end: 20060223
  7. TOBRAMYCIN [Concomitant]
     Dosage: UNKNONW
     Dates: start: 20060107, end: 20060101
  8. TIENAM [Concomitant]
     Dosage: UNKNOWN
     Dates: start: 20060206, end: 20060223
  9. ZYVOX [Concomitant]
     Dosage: UNKNOWN
     Dates: start: 20060107, end: 20060101
  10. ZYVOX [Concomitant]
     Dosage: UNKNOWN
     Dates: start: 20060328
  11. CLAVENTIN [Concomitant]
     Dosage: UNKNOWN
     Dates: start: 20060107, end: 20060101

REACTIONS (10)
  - CONDITION AGGRAVATED [None]
  - CYTOMEGALOVIRUS INFECTION [None]
  - DRUG INEFFECTIVE [None]
  - ENTEROCOCCAL SEPSIS [None]
  - HISTIOCYTOSIS HAEMATOPHAGIC [None]
  - JAUNDICE CHOLESTATIC [None]
  - PSEUDOMONAL SEPSIS [None]
  - PSEUDOMONAS INFECTION [None]
  - SEPTIC SHOCK [None]
  - SHOCK HAEMORRHAGIC [None]
